FAERS Safety Report 11495778 (Version 1)
Quarter: 2015Q3

REPORT INFORMATION
  Report Type: Spontaneous
  Country: JP (occurrence: JP)
  Receive Date: 20150911
  Receipt Date: 20150911
  Transmission Date: 20151125
  Serious: Yes (Hospitalization)
  Sender: FDA-Public Use
  Company Number: JP-AMGEN-JPNSP2015093836

PATIENT
  Age: 67 Year
  Sex: Male

DRUGS (1)
  1. RANMARK [Suspect]
     Active Substance: DENOSUMAB
     Indication: BONE GIANT CELL TUMOUR
     Dosage: 120 MG, CYCLICAL
     Route: 058
     Dates: start: 20141111, end: 20150512

REACTIONS (1)
  - Bone giant cell tumour malignant [Not Recovered/Not Resolved]

NARRATIVE: CASE EVENT DATE: 20150805
